FAERS Safety Report 6270391-8 (Version None)
Quarter: 2009Q3

REPORT INFORMATION
  Report Type: 
  Country: None (occurrence: None)
  Receive Date: 20090716
  Receipt Date: 20090710
  Transmission Date: 20100115
  Serious: Yes (Death)
  Sender: FDA-Public Use
  Company Number: CA-CUBIST-2009S1000261

PATIENT
  Age: 75 Year
  Sex: Female
  Weight: 110 kg

DRUGS (5)
  1. CUBICIN [Suspect]
     Indication: STAPHYLOCOCCAL BACTERAEMIA
     Route: 042
     Dates: start: 20090523, end: 20090616
  2. CUBICIN [Suspect]
     Indication: ENDOCARDITIS STAPHYLOCOCCAL
     Route: 042
     Dates: start: 20090523, end: 20090616
  3. CUBICIN [Suspect]
     Indication: ENDOCARDITIS
     Route: 042
     Dates: start: 20090523, end: 20090616
  4. VANCOMYCIN [Concomitant]
     Indication: STAPHYLOCOCCAL BACTERAEMIA
     Route: 042
     Dates: start: 20090515, end: 20090525
  5. VANCOMYCIN [Concomitant]
     Route: 042
     Dates: start: 20090515, end: 20090525

REACTIONS (3)
  - ANTIMICROBIAL SUSCEPTIBILITY TEST RESISTANT [None]
  - BACTERAEMIA [None]
  - DRUG INEFFECTIVE [None]
